FAERS Safety Report 24816173 (Version 2)
Quarter: 2025Q1

REPORT INFORMATION
  Report Type: Spontaneous
  Country: IT (occurrence: IT)
  Receive Date: 20250107
  Receipt Date: 20250114
  Transmission Date: 20250409
  Serious: Yes (Death)
  Sender: PFIZER
  Company Number: IT-MYLANLABS-2024M1115328

PATIENT
  Sex: Female

DRUGS (4)
  1. LORAZEPAM [Suspect]
     Active Substance: LORAZEPAM
  2. TAVOR (LORAZEPAM) [Suspect]
     Active Substance: LORAZEPAM
  3. XANAX [Suspect]
     Active Substance: ALPRAZOLAM
     Dosage: 100 DOSAGE FORM, QD (HIGH DOSES OF TRANQUILIZERS EVEN 100  DROPS OF XANAX IN ONE DAY)
  4. TRAZODONE HYDROCHLORIDE [Suspect]
     Active Substance: TRAZODONE HYDROCHLORIDE

REACTIONS (7)
  - Overdose [Fatal]
  - Victim of homicide [Fatal]
  - Death [Fatal]
  - Drug diversion [Unknown]
  - Hypoglycaemia [Unknown]
  - Asthenia [Unknown]
  - Malaise [Unknown]
